FAERS Safety Report 6936326-7 (Version None)
Quarter: 2010Q3

REPORT INFORMATION
  Report Type: 
  Country: None (occurrence: None)
  Receive Date: 20100823
  Receipt Date: 20100813
  Transmission Date: 20110219
  Serious: Yes (Hospitalization)
  Sender: FDA-Public Use
  Company Number: DK-PFIZER INC-2009152125

PATIENT
  Age: 67 Year
  Sex: Male

DRUGS (7)
  1. SUNITINIB MALATE [Suspect]
     Indication: NON-SMALL CELL LUNG CANCER
     Dosage: 37.5 MG, 1X/DAY
     Route: 048
     Dates: start: 20080910, end: 20081222
  2. ERLOTINIB HYDROCHLORIDE [Suspect]
     Indication: NON-SMALL CELL LUNG CANCER
     Dosage: 150 MG, 1X/DAY
     Route: 048
     Dates: start: 20080910, end: 20081222
  3. ACYCLOVIR SODIUM [Suspect]
     Dosage: 800 MG 5X/DAY
     Route: 048
     Dates: start: 20081203, end: 20081207
  4. FOSAMAX [Concomitant]
     Dosage: UNK
     Route: 048
  5. PARACETAMOL [Concomitant]
     Dosage: UNK
     Route: 048
     Dates: start: 20081024
  6. DIGOXIN [Concomitant]
  7. METOPROLOL [Concomitant]

REACTIONS (2)
  - DIARRHOEA [None]
  - LUNG INFECTION [None]
